FAERS Safety Report 8202425-5 (Version None)
Quarter: 2012Q1

REPORT INFORMATION
  Report Type: 
  Country: None (occurrence: None)
  Receive Date: 20120312
  Receipt Date: 20110902
  Transmission Date: 20120608
  Serious: No
  Sender: FDA-Public Use
  Company Number: US-ABBOTT-11P-163-0852661-00

PATIENT
  Sex: Male

DRUGS (5)
  1. ZOMIG [Suspect]
     Indication: HEADACHE
  2. DEPAKOTE [Suspect]
     Indication: HEADACHE
     Dates: start: 19930101, end: 19960101
  3. IMITREX [Suspect]
     Indication: HEADACHE
  4. SKELAXIN [Suspect]
     Indication: HEADACHE
  5. SOMA [Suspect]
     Indication: HEADACHE

REACTIONS (3)
  - MOOD ALTERED [None]
  - DISTURBANCE IN ATTENTION [None]
  - FATIGUE [None]
